FAERS Safety Report 6507506-X (Version None)
Quarter: 2009Q4

REPORT INFORMATION
  Report Type: 
  Country: None (occurrence: None)
  Receive Date: 20091216
  Receipt Date: 20091211
  Transmission Date: 20100525
  Serious: Yes (Other)
  Sender: FDA-Public Use
  Company Number: 1000010028

PATIENT
  Age: 48 Year
  Sex: Female
  Weight: 79.8331 kg

DRUGS (1)
  1. BYSTOLIC [Suspect]
     Dosage: 5 MG (5 MG, 3 IN 1 D), ORAL
     Route: 048
     Dates: start: 20090912

REACTIONS (1)
  - NO ADVERSE EVENT [None]
